FAERS Safety Report 9741760 (Version 1)
Quarter: 2013Q4

REPORT INFORMATION
  Report Type: Spontaneous
  Country: CN (occurrence: CN)
  Receive Date: 20131210
  Receipt Date: 20131210
  Transmission Date: 20140711
  Serious: Yes (Other)
  Sender: FDA-Public Use
  Company Number: CN-ROCHE-1312357

PATIENT
  Age: 59 Year
  Sex: Male

DRUGS (2)
  1. XELODA [Suspect]
     Indication: ADENOCARCINOMA GASTRIC
     Route: 048
     Dates: start: 20131130, end: 20131130
  2. OXALIPLATIN [Concomitant]
     Route: 042
     Dates: start: 20131129

REACTIONS (2)
  - Pruritus generalised [Recovered/Resolved]
  - Blister [Recovered/Resolved]
